FAERS Safety Report 5733976-0 (Version None)
Quarter: 2008Q2

REPORT INFORMATION
  Report Type: 
  Country: None (occurrence: None)
  Receive Date: 20080509
  Receipt Date: 20080415
  Transmission Date: 20081010
  Serious: No
  Sender: FDA-Public Use
  Company Number: US-BOEHRINGER INGELHEIM GMBH, GERMANY-2008-BP-05947BP

PATIENT
  Age: 70 Year
  Sex: Male

DRUGS (2)
  1. AGGRENOX [Suspect]
     Indication: CEREBROVASCULAR ACCIDENT
     Route: 048
     Dates: start: 20080101
  2. LOPRESSOR [Concomitant]

REACTIONS (5)
  - FATIGUE [None]
  - JOINT SWELLING [None]
  - PYREXIA [None]
  - URTICARIA [None]
  - WEIGHT DECREASED [None]
